FAERS Safety Report 24055466 (Version 1)
Quarter: 2024Q3

REPORT INFORMATION
  Report Type: Spontaneous
  Country: US (occurrence: US)
  Receive Date: 20240705
  Receipt Date: 20240705
  Transmission Date: 20241016
  Serious: Yes (Other)
  Sender: ORGANON
  Company Number: US-ORGANON-O2406USA002442

PATIENT
  Sex: Female

DRUGS (1)
  1. NEXPLANON [Suspect]
     Active Substance: ETONOGESTREL
     Dosage: 1 IMPLANT
     Route: 059
     Dates: start: 20240508, end: 2024

REACTIONS (9)
  - Device expulsion [Recovered/Resolved]
  - Blister rupture [Recovered/Resolved]
  - Implant site vesicles [Recovered/Resolved]
  - Implant site pain [Unknown]
  - Implant site irritation [Unknown]
  - Implant site pruritus [Unknown]
  - Implantation complication [Recovered/Resolved]
  - Complication associated with device [Recovered/Resolved]
  - Device issue [Recovered/Resolved]

NARRATIVE: CASE EVENT DATE: 20240101
